FAERS Safety Report 8407338-1 (Version None)
Quarter: 2012Q2

REPORT INFORMATION
  Report Type: 
  Country: None (occurrence: None)
  Receive Date: 20120604
  Receipt Date: 20120525
  Transmission Date: 20120825
  Serious: Yes (Other)
  Sender: FDA-Public Use
  Company Number: US-ASTRAZENECA-2011SE41926

PATIENT
  Age: 47 Year
  Sex: Male
  Weight: 94.1 kg

DRUGS (4)
  1. TRICOR [Concomitant]
     Dates: end: 20110516
  2. FLEXERIL [Concomitant]
  3. CELEBREX [Concomitant]
  4. NEXIUM [Suspect]
     Indication: GASTROOESOPHAGEAL REFLUX DISEASE
     Route: 048

REACTIONS (19)
  - VERTEBRAL FORAMINAL STENOSIS [None]
  - ROTATOR CUFF SYNDROME [None]
  - GLYCOSYLATED HAEMOGLOBIN INCREASED [None]
  - LIGAMENT RUPTURE [None]
  - PERIARTHRITIS [None]
  - SPINAL OSTEOARTHRITIS [None]
  - CHEST PAIN [None]
  - TENOSYNOVITIS [None]
  - MUSCULOSKELETAL PAIN [None]
  - INTERVERTEBRAL DISC PROTRUSION [None]
  - BLOOD TRIGLYCERIDES ABNORMAL [None]
  - DRUG DOSE OMISSION [None]
  - RADICULOPATHY [None]
  - ADVERSE EVENT [None]
  - OSTEOARTHRITIS [None]
  - HYPERLIPIDAEMIA [None]
  - BACK PAIN [None]
  - MONONEURITIS [None]
  - ABDOMINAL PAIN [None]
